FAERS Safety Report 4353342-2 (Version None)
Quarter: 2004Q2

REPORT INFORMATION
  Report Type: 
  Country: None (occurrence: None)
  Receive Date: 20040429
  Receipt Date: 20040419
  Transmission Date: 20050107
  Serious: Yes (Death)
  Sender: FDA-Public Use
  Company Number: 04H-163-0258061-00

PATIENT
  Age: 66 Year
  Sex: Female

DRUGS (1)
  1. MORPHINE SULFATE 1 MG/ML INJ. PRESERV. FREE, USP, 30 ML PCA ABBOJECT ( [Suspect]
     Dosage: INTRAVENOUS
     Route: 042

REACTIONS (3)
  - COMA [None]
  - MEDICATION ERROR [None]
  - OVERDOSE [None]
